FAERS Safety Report 6223234-2 (Version None)
Quarter: 2009Q2

REPORT INFORMATION
  Report Type: 
  Country: None (occurrence: None)
  Receive Date: 20090611
  Receipt Date: 20090512
  Transmission Date: 20091009
  Serious: Yes (Hospitalization)
  Sender: FDA-Public Use
  Company Number: US-AVENTIS-200817618US

PATIENT
  Sex: Male
  Weight: 120.45 kg

DRUGS (16)
  1. KETEK [Suspect]
     Dosage: DOSE: 400X2
     Dates: start: 20041025
  2. KETEK [Suspect]
     Dosage: DOSE: 2 OF THE 400 MG TABS DAILY FOR 10 DAYS
     Dates: start: 20050509
  3. KETEK [Suspect]
     Indication: GLOSSITIS
     Dosage: DOSE: 400X2
     Dates: start: 20041025
  4. KETEK [Suspect]
     Dosage: DOSE: 2 OF THE 400 MG TABS DAILY FOR 10 DAYS
     Dates: start: 20050509
  5. KETEK [Suspect]
     Indication: ACUTE SINUSITIS
     Dosage: DOSE: 400X2
     Dates: start: 20041025
  6. KETEK [Suspect]
     Dosage: DOSE: 2 OF THE 400 MG TABS DAILY FOR 10 DAYS
     Dates: start: 20050509
  7. ERYTHROMYCIN [Suspect]
     Indication: GLOSSITIS
     Dosage: DOSE: 400 MG/5CC SWISH AND SPIT
     Dates: start: 20041025
  8. DECADRON [Concomitant]
     Indication: GLOSSITIS
     Dosage: DOSE: UNK
     Dates: start: 20041025
  9. BENADRYL [Concomitant]
     Indication: GLOSSITIS
     Dosage: DOSE: 25 MG/5CC  SWISH AND SPIT OUT
     Dates: start: 20041025
  10. BC [Concomitant]
     Dosage: DOSE: UNK
  11. ANTIHYPERTENSIVES [Concomitant]
     Indication: HYPERTENSION
     Dosage: DOSE: UNK
  12. DIOVAN HCT [Concomitant]
     Dosage: DOSE: 160/25 ONE A DAY
  13. RITALIN [Concomitant]
  14. NAPROSYN [Concomitant]
     Dosage: DOSE: 500 ONE TWICE A DAY WITH MEALS
  15. NEXIUM [Concomitant]
  16. AMBIEN [Concomitant]
     Dosage: DOSE: 10 ONE DAILY AT BEDTIME AS NEEDED FOR SLEEP
     Route: 048

REACTIONS (11)
  - AMMONIA INCREASED [None]
  - ASTHENIA [None]
  - CONFUSIONAL STATE [None]
  - DYSARTHRIA [None]
  - HEPATIC CIRRHOSIS [None]
  - HEPATIC STEATOSIS [None]
  - HEPATOMEGALY [None]
  - LETHARGY [None]
  - LIVER FUNCTION TEST ABNORMAL [None]
  - MEMORY IMPAIRMENT [None]
  - WEIGHT INCREASED [None]
